FAERS Safety Report 22187210 (Version 24)
Quarter: 2024Q2

REPORT INFORMATION
  Report Type: Report from Study
  Country: AT (occurrence: AT)
  Receive Date: 20230407
  Receipt Date: 20240603
  Transmission Date: 20240716
  Serious: Yes (Hospitalization)
  Sender: FDA-Public Use
  Company Number: AT-ABBVIE-4720508

PATIENT
  Age: 82 Year
  Sex: Male
  Weight: 77 kg

DRUGS (104)
  1. VENETOCLAX [Suspect]
     Active Substance: VENETOCLAX
     Indication: Acute myeloid leukaemia
     Dosage: 100MG: UP TITRATION
     Route: 048
     Dates: start: 20230309, end: 20230309
  2. VENETOCLAX [Suspect]
     Active Substance: VENETOCLAX
     Indication: Acute myeloid leukaemia
     Dosage: 400MG: STANDARD TREATMENT
     Route: 048
     Dates: start: 20230311, end: 20230311
  3. VENETOCLAX [Suspect]
     Active Substance: VENETOCLAX
     Indication: Acute myeloid leukaemia
     Dosage: 200MG: UP TITRATION
     Route: 048
     Dates: start: 20230310, end: 20230310
  4. VENETOCLAX [Suspect]
     Active Substance: VENETOCLAX
     Indication: Acute myeloid leukaemia
     Route: 048
     Dates: start: 20230530, end: 20230613
  5. VENETOCLAX [Suspect]
     Active Substance: VENETOCLAX
     Indication: Acute myeloid leukaemia
     Route: 048
     Dates: start: 20230627, end: 20230711
  6. VENETOCLAX [Suspect]
     Active Substance: VENETOCLAX
     Indication: Acute myeloid leukaemia
     Route: 048
     Dates: start: 20230502, end: 20230517
  7. VENETOCLAX [Suspect]
     Active Substance: VENETOCLAX
     Indication: Acute myeloid leukaemia
     Route: 048
     Dates: start: 20230312, end: 20230403
  8. VENETOCLAX [Suspect]
     Active Substance: VENETOCLAX
     Indication: Acute myeloid leukaemia
     Route: 048
     Dates: start: 20230918, end: 20231002
  9. VENETOCLAX [Suspect]
     Active Substance: VENETOCLAX
     Indication: Acute myeloid leukaemia
     Route: 048
     Dates: start: 20230807, end: 20230820
  10. VENETOCLAX [Suspect]
     Active Substance: VENETOCLAX
     Indication: Acute myeloid leukaemia
     Route: 048
     Dates: start: 20231023, end: 20231102
  11. VENETOCLAX [Suspect]
     Active Substance: VENETOCLAX
     Indication: Acute myeloid leukaemia
     Dosage: STANDARD DOSE
     Route: 048
     Dates: start: 20240104, end: 20240118
  12. VENETOCLAX [Suspect]
     Active Substance: VENETOCLAX
     Indication: Acute myeloid leukaemia
     Route: 048
     Dates: start: 20231127, end: 20231205
  13. VENETOCLAX [Suspect]
     Active Substance: VENETOCLAX
     Indication: Acute myeloid leukaemia
     Dosage: FREQUENCY TEXT: HEMATOLOGIC AE/SAE
     Route: 048
     Dates: start: 20240208, end: 20240216
  14. VENETOCLAX [Suspect]
     Active Substance: VENETOCLAX
     Indication: Acute myeloid leukaemia
     Dosage: FREQUENCY TEXT: HEMATOLOGIC AE/SAE
     Route: 048
     Dates: start: 20240314, end: 20240322
  15. VENETOCLAX [Suspect]
     Active Substance: VENETOCLAX
     Indication: Acute myeloid leukaemia
     Dosage: FREQUENCY TEXT: HEMATOLOGIC AE/SAE
     Route: 048
     Dates: start: 20240418, end: 20240426
  16. VENETOCLAX [Suspect]
     Active Substance: VENETOCLAX
     Indication: Acute myeloid leukaemia
     Dosage: 0 MG
     Route: 048
     Dates: start: 20240119, end: 202402
  17. VENETOCLAX [Suspect]
     Active Substance: VENETOCLAX
     Indication: Acute myeloid leukaemia
     Dosage: 0 MG
     Route: 048
     Dates: start: 20231206, end: 20240103
  18. VENETOCLAX [Suspect]
     Active Substance: VENETOCLAX
     Indication: Acute myeloid leukaemia
     Dosage: 0 MG
     Route: 048
     Dates: start: 20231103, end: 20231126
  19. VENETOCLAX [Suspect]
     Active Substance: VENETOCLAX
     Indication: Acute myeloid leukaemia
     Dosage: 0 MG
     Route: 048
     Dates: start: 20231003, end: 20231022
  20. VENETOCLAX [Suspect]
     Active Substance: VENETOCLAX
     Indication: Acute myeloid leukaemia
     Dosage: 0 MG
     Route: 048
     Dates: start: 20230821, end: 20230917
  21. VENETOCLAX [Suspect]
     Active Substance: VENETOCLAX
     Indication: Acute myeloid leukaemia
     Dosage: 0 MG
     Route: 048
     Dates: start: 20230712, end: 20230806
  22. VENETOCLAX [Suspect]
     Active Substance: VENETOCLAX
     Indication: Acute myeloid leukaemia
     Dosage: 0 MG
     Route: 048
     Dates: start: 20230614, end: 20230626
  23. VENETOCLAX [Suspect]
     Active Substance: VENETOCLAX
     Indication: Acute myeloid leukaemia
     Dosage: 0 MG
     Route: 048
     Dates: start: 20230518, end: 20230529
  24. VENETOCLAX [Suspect]
     Active Substance: VENETOCLAX
     Indication: Acute myeloid leukaemia
     Dosage: 0 MG
     Route: 048
     Dates: start: 20230404, end: 20230501
  25. VENETOCLAX [Suspect]
     Active Substance: VENETOCLAX
     Indication: Acute myeloid leukaemia
     Dosage: FREQUENCY TEXT: HEMATOLOGIC AE/SAE
     Route: 048
     Dates: start: 20240523
  26. AZACITIDINE [Concomitant]
     Active Substance: AZACITIDINE
     Indication: Product used for unknown indication
     Dates: start: 20230502, end: 20230509
  27. AZACITIDINE [Concomitant]
     Active Substance: AZACITIDINE
     Indication: Product used for unknown indication
     Dates: start: 20230807, end: 20230816
  28. AZACITIDINE [Concomitant]
     Active Substance: AZACITIDINE
     Indication: Product used for unknown indication
     Dates: start: 20230308, end: 20230315
  29. AZACITIDINE [Concomitant]
     Active Substance: AZACITIDINE
     Indication: Product used for unknown indication
     Dates: start: 20230627, end: 20230705
  30. AZACITIDINE [Concomitant]
     Active Substance: AZACITIDINE
     Indication: Product used for unknown indication
     Dates: start: 20230530, end: 20230606
  31. AZACITIDINE [Concomitant]
     Active Substance: AZACITIDINE
     Indication: Product used for unknown indication
     Dates: start: 20230918, end: 20230926
  32. AZACITIDINE [Concomitant]
     Active Substance: AZACITIDINE
     Indication: Product used for unknown indication
     Dates: start: 20231023, end: 20231103
  33. AZACITIDINE [Concomitant]
     Active Substance: AZACITIDINE
     Indication: Product used for unknown indication
     Dosage: FREQUENCY TEXT: STANDARD DOSE
     Dates: start: 20231127, end: 20231205
  34. AZACITIDINE [Concomitant]
     Active Substance: AZACITIDINE
     Indication: Product used for unknown indication
     Dosage: FREQUENCY TEXT: STANDARD DOSE
     Dates: start: 20240104, end: 20240112
  35. AZACITIDINE [Concomitant]
     Active Substance: AZACITIDINE
     Indication: Product used for unknown indication
     Dates: start: 20240208, end: 20240216
  36. AZACITIDINE [Concomitant]
     Active Substance: AZACITIDINE
     Indication: Product used for unknown indication
     Dosage: FREQUENCY TEXT: STANDARD DOSE
     Dates: start: 20240314, end: 20240322
  37. AZACITIDINE [Concomitant]
     Active Substance: AZACITIDINE
     Indication: Product used for unknown indication
     Dosage: FREQUENCY TEXT: STANDARD DOSE
     Dates: start: 20240418, end: 20240426
  38. AZACITIDINE [Concomitant]
     Active Substance: AZACITIDINE
     Indication: Product used for unknown indication
     Dosage: FREQUENCY TEXT: STANDARD DOSE
     Dates: start: 20240523
  39. CLINDAMYCIN [Concomitant]
     Active Substance: CLINDAMYCIN
     Indication: Product used for unknown indication
     Dosage: FREQUENCY TEXT: DAILY
     Route: 048
     Dates: start: 20230721, end: 20230725
  40. GLYCOSAMINOGLYCANS [Concomitant]
     Active Substance: GLYCOSAMINOGLYCANS
     Indication: Product used for unknown indication
     Dosage: TIME INTERVAL: AS NECESSARY: FREQUENCY TEXT: AS REQUIRED?GEL
     Route: 062
     Dates: start: 20230310, end: 20230402
  41. ELOMEL [Concomitant]
     Indication: Product used for unknown indication
     Route: 042
     Dates: start: 20230308, end: 20230312
  42. ELOMEL [Concomitant]
     Indication: Product used for unknown indication
     Dosage: FREQUENCY TEXT: DAILY
     Route: 042
     Dates: start: 20230403, end: 20230413
  43. ELOMEL [Concomitant]
     Indication: Product used for unknown indication
     Dosage: FREQUENCY TEXT: TWICE DAILY (BIS IN DIE - BID)
     Route: 042
     Dates: start: 20230313, end: 20230316
  44. CYKLOKAPRON [Concomitant]
     Active Substance: TRANEXAMIC ACID
     Indication: Product used for unknown indication
     Dosage: TIME INTERVAL: 0.33333333 DAYS: FREQUENCY TEXT: THREE TIMES DAILY - TER IN DIE (TID)
     Route: 048
     Dates: start: 20230406, end: 20230417
  45. IMODIUM [Concomitant]
     Active Substance: LOPERAMIDE HYDROCHLORIDE
     Indication: Product used for unknown indication
     Dosage: FREQUENCY TEXT: DAILY
     Route: 048
     Dates: start: 20230307, end: 20230307
  46. POLYETHYLENE GLYCOL 3350\POTASSIUM CHLORIDE\SODIUM BICARBONATE\SODIUM [Concomitant]
     Active Substance: POLYETHYLENE GLYCOL 3350\POTASSIUM CHLORIDE\SODIUM BICARBONATE\SODIUM CHLORIDE
     Indication: Product used for unknown indication
     Dosage: FREQUENCY TEXT: DAILY
     Route: 048
     Dates: start: 20230403, end: 20230404
  47. PASSEDAN [Concomitant]
     Indication: Product used for unknown indication
     Dosage: TIME INTERVAL: AS NECESSARY: FREQUENCY TEXT: AS REQUIRED
     Route: 048
     Dates: start: 20230316
  48. ENOXAPARIN SODIUM [Concomitant]
     Active Substance: ENOXAPARIN SODIUM
     Indication: Product used for unknown indication
     Dosage: FREQUENCY TEXT: DAILY
     Route: 058
     Dates: start: 20230303, end: 20230314
  49. ENOXAPARIN SODIUM [Concomitant]
     Active Substance: ENOXAPARIN SODIUM
     Indication: Product used for unknown indication
     Dosage: FREQUENCY TEXT: DAILY
     Route: 058
     Dates: start: 20230530, end: 20230605
  50. Leukichtan [Concomitant]
     Indication: Product used for unknown indication
     Dosage: FREQUENCY TEXT: DAILY
     Route: 062
     Dates: start: 20230405, end: 20230425
  51. VALACYCLOVIR HYDROCHLORIDE [Concomitant]
     Active Substance: VALACYCLOVIR HYDROCHLORIDE
     Indication: Product used for unknown indication
     Dosage: FREQUENCY TEXT: DAILY
     Route: 048
     Dates: start: 20230304, end: 20230309
  52. DEXPANTHENOL [Concomitant]
     Active Substance: DEXPANTHENOL
     Indication: Product used for unknown indication
     Dosage: TIME INTERVAL: 0.33333333 DAYS: FREQUENCY TEXT: THREE TIMES DAILY (TER IN DIE- TID)?5 PERCENT SOL...
     Route: 062
     Dates: start: 20230303
  53. NEBIVOLOL HYDROCHLORIDE [Concomitant]
     Active Substance: NEBIVOLOL HYDROCHLORIDE
     Indication: Product used for unknown indication
     Dosage: FREQUENCY TEXT: DAILY?2.5 MG?START DATE TEXT: UNKNOWN
     Route: 048
  54. MOXIFLOXACIN [Concomitant]
     Active Substance: MOXIFLOXACIN
     Indication: Product used for unknown indication
     Dosage: FREQUENCY TEXT: DAILY
     Route: 048
     Dates: start: 20230412, end: 20230416
  55. Erythrocytes, concentrated [Concomitant]
     Indication: Product used for unknown indication
     Dosage: FREQUENCY TEXT: DAILY?ERYTHROCYTE CONCENTRATE
     Route: 042
     Dates: start: 20230406, end: 20230408
  56. Erythrocytes, concentrated [Concomitant]
     Indication: Product used for unknown indication
     Dosage: FREQUENCY TEXT: DAILY?ERYTHROCYTE CONCENTRATE
     Route: 042
     Dates: start: 20230311, end: 20230312
  57. Erythrocytes, concentrated [Concomitant]
     Indication: Product used for unknown indication
     Dosage: FREQUENCY TEXT: DAILY?ERYTHROCYTE CONCENTRATE
     Route: 042
     Dates: start: 20230403, end: 20230404
  58. Erythrocytes, concentrated [Concomitant]
     Indication: Product used for unknown indication
     Dosage: FREQUENCY TEXT: DAILY?ERYTHROCYTE CONCENTRATE
     Route: 042
     Dates: start: 20230710, end: 20230710
  59. OXYGEN [Concomitant]
     Active Substance: OXYGEN
     Indication: Product used for unknown indication
     Dosage: TIME INTERVAL: AS NECESSARY: FREQUENCY TEXT: AS REQUIRED OXYGENE
     Route: 055
     Dates: start: 20230303
  60. FLUPREDNIDENE ACETATE [Concomitant]
     Active Substance: FLUPREDNIDENE ACETATE
     Indication: Product used for unknown indication
     Dosage: TIME INTERVAL: AS NECESSARY: FREQUENCY TEXT: AS REQUIRED
     Route: 062
     Dates: start: 20230310, end: 20230402
  61. PIPERACILLIN AND TAZOBACTAM [Concomitant]
     Active Substance: PIPERACILLIN SODIUM\TAZOBACTAM SODIUM
     Indication: Product used for unknown indication
     Dosage: TIME INTERVAL: 0.33333333 DAYS: 4000/500 MG; FREQUENCY TEXT: THREE TIMES DAILY (TER IN DIE - TID)
     Route: 042
     Dates: start: 20230304, end: 20230312
  62. PIPERACILLIN AND TAZOBACTAM [Concomitant]
     Active Substance: PIPERACILLIN SODIUM\TAZOBACTAM SODIUM
     Indication: Product used for unknown indication
     Dosage: 4000/500 MG; FREQUENCY TEXT: DAILY
     Dates: start: 20230313, end: 20230313
  63. PIPERACILLIN AND TAZOBACTAM [Concomitant]
     Active Substance: PIPERACILLIN SODIUM\TAZOBACTAM SODIUM
     Indication: Product used for unknown indication
     Dosage: TIME INTERVAL: 0.33333333 DAYS: 4000/500 MG; FREQUENCY TEXT: THREE TIMES DAILY - TER IN DIE (TID)
     Route: 042
     Dates: start: 20230403, end: 20230411
  64. PIPERACILLIN AND TAZOBACTAM [Concomitant]
     Active Substance: PIPERACILLIN SODIUM\TAZOBACTAM SODIUM
     Indication: Product used for unknown indication
     Dosage: 4000/500 MG; FREQUENCY TEXT: TWO TIMES DAILY - BIS IN DIE (BID)
     Route: 042
     Dates: start: 20230412, end: 20230412
  65. CHLORHEXIDINE GLUCONATE [Concomitant]
     Active Substance: CHLORHEXIDINE GLUCONATE
     Indication: Product used for unknown indication
     Dosage: TIME INTERVAL: AS NECESSARY: CHLORHEXIDINIGLUCINAT 20% DIPRODERM; FREQUENCY TEXT: AS REQUIRED
     Route: 062
     Dates: start: 20230313, end: 20230402
  66. GRANULOCYTE COLONY-STIMULATING FACTOR NOS [Concomitant]
     Active Substance: GRANULOCYTE COLONY-STIMULATING FACTOR NOS
     Indication: Supportive care
     Dosage: FREQUENCY TEXT: TWICE WEEKLY?FIRST  ADMIN DATE: 2023
     Dates: end: 20231017
  67. GRANULOCYTE COLONY-STIMULATING FACTOR NOS [Concomitant]
     Active Substance: GRANULOCYTE COLONY-STIMULATING FACTOR NOS
     Indication: Supportive care
     Dosage: FREQUENCY TEXT: DAILY
     Dates: start: 20230316, end: 20230410
  68. GRANULOCYTE COLONY-STIMULATING FACTOR NOS [Concomitant]
     Active Substance: GRANULOCYTE COLONY-STIMULATING FACTOR NOS
     Indication: Supportive care
     Dosage: FREQUENCY TEXT: EVERY 3RD DAY
     Dates: start: 20230601, end: 20230621
  69. GRANULOCYTE COLONY-STIMULATING FACTOR NOS [Concomitant]
     Active Substance: GRANULOCYTE COLONY-STIMULATING FACTOR NOS
     Indication: Supportive care
     Dosage: FREQUENCY TEXT: EVERY 2ND DAY
     Dates: start: 20230622, end: 20230921
  70. GRANULOCYTE COLONY-STIMULATING FACTOR NOS [Concomitant]
     Active Substance: GRANULOCYTE COLONY-STIMULATING FACTOR NOS
     Indication: Supportive care
     Dosage: FREQUENCY TEXT: WEEKLY
     Dates: start: 20231115
  71. GRANULOCYTE COLONY-STIMULATING FACTOR NOS [Concomitant]
     Active Substance: GRANULOCYTE COLONY-STIMULATING FACTOR NOS
     Indication: Supportive care
     Dosage: FREQUENCY TEXT: DAILY
     Dates: start: 20230310, end: 20230315
  72. PLATELETS [Concomitant]
     Active Substance: HUMAN PLATELET, ALLOGENIC
     Indication: Product used for unknown indication
     Dosage: FREQUENCY TEXT: DAILY?THROMBOCYTE CONCENTRATE
     Route: 042
     Dates: start: 20230929, end: 20230929
  73. PLATELETS [Concomitant]
     Active Substance: HUMAN PLATELET, ALLOGENIC
     Indication: Product used for unknown indication
     Dosage: FREQUENCY TEXT: DAILY?THROMBOCYTE CONCENTRATE
     Route: 042
     Dates: start: 20230406, end: 20230410
  74. PLATELETS [Concomitant]
     Active Substance: HUMAN PLATELET, ALLOGENIC
     Indication: Product used for unknown indication
     Dosage: FREQUENCY TEXT: DAILY?THROMBOCYTE CONCENTRATE
     Route: 042
     Dates: start: 20231110, end: 20231110
  75. PLATELETS [Concomitant]
     Active Substance: HUMAN PLATELET, ALLOGENIC
     Indication: Product used for unknown indication
     Dosage: FREQUENCY TEXT: DAILY?THROMBOCYTE CONCENTRATE
     Route: 042
     Dates: start: 20230413, end: 20230413
  76. PLATELETS [Concomitant]
     Active Substance: HUMAN PLATELET, ALLOGENIC
     Indication: Product used for unknown indication
     Dosage: FREQUENCY TEXT: DAILY?FIRST ADMIN DATE: 2023?THROMBOCYTE CONCENTRATE
     Route: 042
     Dates: end: 20231204
  77. PLATELETS [Concomitant]
     Active Substance: HUMAN PLATELET, ALLOGENIC
     Indication: Product used for unknown indication
     Dosage: FREQUENCY TEXT: DAILY?THROMBOCYTE CONCENTRATE
     Route: 042
     Dates: start: 20230403, end: 20230404
  78. PLATELETS [Concomitant]
     Active Substance: HUMAN PLATELET, ALLOGENIC
     Indication: Product used for unknown indication
     Dosage: FREQUENCY TEXT: DAILY?THROMBOCYTE CONCENTRATE
     Route: 042
     Dates: start: 20231108, end: 20231108
  79. PLATELETS [Concomitant]
     Active Substance: HUMAN PLATELET, ALLOGENIC
     Indication: Product used for unknown indication
     Dosage: FREQUENCY TEXT: DAILY?THROMBOCYTE CONCENTRATE
     Route: 042
     Dates: start: 20230710, end: 20230710
  80. PLATELETS [Concomitant]
     Active Substance: HUMAN PLATELET, ALLOGENIC
     Indication: Product used for unknown indication
     Dosage: FREQUENCY TEXT: DAILY?THROMBOCYTE CONCENTRATE
     Route: 042
     Dates: start: 20231213, end: 20231213
  81. ICHTHOLAN [Concomitant]
     Indication: Product used for unknown indication
     Dosage: FREQUENCY TEXT: DAILY??ICHTYOLAN
     Route: 062
     Dates: start: 20230705, end: 20230709
  82. PANTOPRAZOLE SODIUM [Concomitant]
     Active Substance: PANTOPRAZOLE SODIUM
     Indication: Product used for unknown indication
     Dosage: LAST ADMIN DATE: 2023; FREQUENCY TEXT: DAILY
     Route: 048
     Dates: start: 20230418
  83. PANTOPRAZOLE SODIUM [Concomitant]
     Active Substance: PANTOPRAZOLE SODIUM
     Indication: Product used for unknown indication
     Dosage: FREQUENCY TEXT: DAILY?START DATE TEXT: UNKNOWN
     Route: 048
     Dates: end: 20230405
  84. PANTOPRAZOLE SODIUM [Concomitant]
     Active Substance: PANTOPRAZOLE SODIUM
     Indication: Product used for unknown indication
     Dosage: FREQUENCY TEXT: TWO TIMES DAILY - BIS (BIS IN DIE
     Route: 048
     Dates: start: 20230406, end: 20230417
  85. INCRUSE ELLIPTA [Concomitant]
     Active Substance: UMECLIDINIUM BROMIDE
     Indication: Product used for unknown indication
     Dosage: INCRUSE SPRAY; FREQUENCY TEXT: DAILY?START DATE TEXT: UNKNOWN
     Route: 055
  86. PERFALGAN [Concomitant]
     Active Substance: ACETAMINOPHEN
     Indication: Product used for unknown indication
     Dosage: TIME INTERVAL: AS NECESSARY: FREQUENCY TEXT: AS REQUIRED
     Route: 042
     Dates: start: 20230303, end: 20230317
  87. LOPERAMIDE HYDROCHLORIDE [Concomitant]
     Active Substance: LOPERAMIDE HYDROCHLORIDE
     Indication: Product used for unknown indication
     Dosage: TIME INTERVAL: AS NECESSARY: FREQUENCY TEXT: AS REQUIRED
     Route: 048
     Dates: start: 20230309
  88. Dulcolax [Concomitant]
     Indication: Product used for unknown indication
     Dosage: FREQUENCY TEXT: DAILY
     Route: 048
     Dates: start: 20230406, end: 20230406
  89. Dulcolax [Concomitant]
     Indication: Product used for unknown indication
     Dosage: TIME INTERVAL: AS NECESSARY: FREQUENCY TEXT: AS REQUIRED
     Route: 048
     Dates: start: 20230519
  90. AUGMENTIN [Concomitant]
     Active Substance: AMOXICILLIN\CLAVULANATE POTASSIUM
     Indication: Product used for unknown indication
     Dosage: FREQUENCY TEXT: DAILY
     Route: 048
     Dates: start: 20230728, end: 20230806
  91. AMPHO-MORONAL [Concomitant]
     Active Substance: AMPHOTERICIN B
     Indication: Product used for unknown indication
     Dosage: TIME INTERVAL: 0.33333333 DAYS: FREQUENCY TEXT: THREE TIMES DAILY (TID) 2 PIPETS?AMPHOMORONAL SUS
     Route: 062
     Dates: start: 20230303
  92. ALLOPURINOL [Concomitant]
     Active Substance: ALLOPURINOL
     Indication: Product used for unknown indication
     Dosage: FREQUENCY TEXT: DAILY
     Route: 048
     Dates: start: 20230308, end: 20230406
  93. Vitamin d 2000 duo [Concomitant]
     Indication: Product used for unknown indication
     Route: 062
     Dates: start: 20230313, end: 20230402
  94. KONAKION [Concomitant]
     Active Substance: PHYTONADIONE
     Indication: Product used for unknown indication
     Dosage: FREQUENCY TEXT: TWICE DAILY - BID (BIS IN DIE)
     Route: 048
     Dates: start: 20230306, end: 20230313
  95. DIPHENHYDRAMINE HYDROCHLORIDE [Concomitant]
     Active Substance: DIPHENHYDRAMINE HYDROCHLORIDE
     Indication: Product used for unknown indication
     Dosage: FREQUENCY TEXT: DAILY
     Route: 042
     Dates: start: 20230404, end: 20230404
  96. VALSARTAN [Concomitant]
     Active Substance: VALSARTAN
     Indication: Product used for unknown indication
     Dosage: FREQUENCY TEXT: DAILY
     Route: 048
     Dates: start: 20230426
  97. VALSARTAN [Concomitant]
     Active Substance: VALSARTAN
     Indication: Product used for unknown indication
     Dosage: FREQUENCY TEXT: DAILY?FIRST ADMIN DATE: 2023
     Route: 048
     Dates: end: 20230403
  98. VALSARTAN [Concomitant]
     Active Substance: VALSARTAN
     Indication: Product used for unknown indication
     Dosage: FREQUENCY TEXT: DAILY
     Route: 048
     Dates: start: 20230304, end: 20230309
  99. Lidaprim [Concomitant]
     Indication: Product used for unknown indication
     Dosage: FREQUENCY TEXT: 2 TIMES PER WEEK - TWO TIMES DAILY
     Route: 048
     Dates: start: 20230304, end: 20230309
  100. DIPYRONE [Concomitant]
     Active Substance: DIPYRONE
     Indication: Product used for unknown indication
     Dosage: TIME INTERVAL: AS NECESSARY: FREQUENCY TEXT: AS REQUIRED
     Route: 048
     Dates: start: 20230404
  101. ALPRAZOLAM [Concomitant]
     Active Substance: ALPRAZOLAM
     Indication: Product used for unknown indication
     Dosage: FREQUENCY TEXT: AS REQUIRED?DOSE: 0.25 MG
     Route: 048
     Dates: start: 20230303
  102. ONDANSETRON [Concomitant]
     Active Substance: ONDANSETRON
     Indication: Product used for unknown indication
     Dosage: TIME INTERVAL: AS NECESSARY: FREQUENCY TEXT: AS REQUIRED
     Route: 048
     Dates: start: 20230921
  103. DRN 8103 THALLOUS CHLORIDE [Concomitant]
     Indication: Product used for unknown indication
     Dates: start: 20230406, end: 20230417
  104. POTASSIUM CHLORIDE [Concomitant]
     Active Substance: POTASSIUM CHLORIDE
     Indication: Product used for unknown indication
     Dosage: FREQUENCY TEXT: TWICE DAILY - BIS IN DIE (BID)
     Route: 048
     Dates: start: 20230406, end: 20230417

REACTIONS (33)
  - Infection [Recovered/Resolved]
  - Thrombocytopenia [Recovered/Resolved]
  - Thrombocytopenia [Recovered/Resolved]
  - Thrombocytopenia [Recovered/Resolved]
  - Thrombocytopenia [Recovered/Resolved]
  - Thrombocytopenia [Recovered/Resolved]
  - Thrombocytopenia [Recovered/Resolved]
  - Thrombocytopenia [Recovered/Resolved]
  - Folliculitis [Recovered/Resolved]
  - Hand fracture [Recovered/Resolved]
  - Thrombocytopenia [Recovered/Resolved]
  - Thrombocytopenia [Recovered/Resolved]
  - Thrombocytopenia [Recovered/Resolved]
  - Thrombocytopenia [Recovered/Resolved]
  - Thrombocytopenia [Recovered/Resolved]
  - Thrombocytopenia [Recovered/Resolved]
  - Constipation [Recovered/Resolved]
  - Thrombocytopenia [Recovered/Resolved]
  - Thrombocytopenia [Recovered/Resolved]
  - Leukopenia [Recovered/Resolved]
  - Leukopenia [Recovered/Resolved]
  - Thrombocytopenia [Recovered/Resolved]
  - Thrombocytopenia [Recovered/Resolved]
  - Fall [Recovered/Resolved]
  - Thrombocytopenia [Not Recovered/Not Resolved]
  - Wound complication [Recovered/Resolved]
  - Thrombocytopenia [Recovered/Resolved]
  - Skin laceration [Recovered/Resolved]
  - Thrombocytopenia [Recovered/Resolved]
  - Leukopenia [Recovered/Resolved]
  - Thrombocytopenia [Recovered/Resolved]
  - Leukopenia [Not Recovered/Not Resolved]
  - Contusion [Recovered/Resolved]

NARRATIVE: CASE EVENT DATE: 20230313
